FAERS Safety Report 14828736 (Version 3)
Quarter: 2018Q2

REPORT INFORMATION
  Report Type: Report from Study
  Country: US (occurrence: US)
  Receive Date: 20180430
  Receipt Date: 20180614
  Transmission Date: 20180711
  Serious: Yes (Other)
  Sender: FDA-Public Use
  Company Number: US-EMD SERONO-E2B_90039943

PATIENT
  Age: 52 Year
  Sex: Female

DRUGS (2)
  1. REBIF [Suspect]
     Active Substance: INTERFERON BETA-1A
     Indication: RELAPSING-REMITTING MULTIPLE SCLEROSIS
     Route: 058
     Dates: start: 20171223
  2. REBIF [Suspect]
     Active Substance: INTERFERON BETA-1A
     Indication: PROGRESSIVE MULTIPLE SCLEROSIS

REACTIONS (10)
  - Nasopharyngitis [Unknown]
  - Off label use [Not Recovered/Not Resolved]
  - Haematemesis [Not Recovered/Not Resolved]
  - Feeling of body temperature change [Not Recovered/Not Resolved]
  - Injection site pain [Not Recovered/Not Resolved]
  - JC polyomavirus test positive [Not Recovered/Not Resolved]
  - Hot flush [Not Recovered/Not Resolved]
  - Influenza like illness [Not Recovered/Not Resolved]
  - Epistaxis [Unknown]
  - Asthenia [Not Recovered/Not Resolved]

NARRATIVE: CASE EVENT DATE: 20180509
